FAERS Safety Report 6095021-X (Version None)
Quarter: 2009Q1

REPORT INFORMATION
  Report Type: 
  Country: None (occurrence: None)
  Receive Date: 20090227
  Receipt Date: 20080522
  Transmission Date: 20090719
  Serious: No
  Sender: FDA-Public Use
  Company Number: A0610503A

PATIENT
  Age: 52 Year
  Sex: Female

DRUGS (4)
  1. LAMICTAL [Suspect]
     Indication: BIPOLAR DISORDER
     Dosage: 12.5MG PER DAY
     Route: 048
     Dates: start: 20060626, end: 20070124
  2. WELLBUTRIN XL [Suspect]
     Indication: BIPOLAR DISORDER
     Dosage: 300MG PER DAY
     Route: 048
     Dates: start: 20061101, end: 20070102
  3. PROTONIX [Suspect]
  4. NO CONCURRENT MEDICATION [Concomitant]

REACTIONS (21)
  - ABDOMINAL DISCOMFORT [None]
  - ABDOMINAL DISTENSION [None]
  - ABDOMINAL PAIN UPPER [None]
  - ALOPECIA [None]
  - ARTHRALGIA [None]
  - DEPRESSED MOOD [None]
  - DIARRHOEA [None]
  - FLATULENCE [None]
  - GLOSSODYNIA [None]
  - HAIR DISORDER [None]
  - HEADACHE [None]
  - INSOMNIA [None]
  - LACRIMATION INCREASED [None]
  - MALAISE [None]
  - MYALGIA [None]
  - MYOCLONUS [None]
  - NAUSEA [None]
  - OROPHARYNGEAL PAIN [None]
  - PRURITUS [None]
  - RHINORRHOEA [None]
  - THROAT IRRITATION [None]
